FAERS Safety Report 25274816 (Version 1)
Quarter: 2025Q2

REPORT INFORMATION
  Report Type: Spontaneous
  Country: FR (occurrence: FR)
  Receive Date: 20250506
  Receipt Date: 20250506
  Transmission Date: 20250716
  Serious: Yes (Other)
  Sender: CSL BEHRING
  Company Number: FR-BEH-2025203685

PATIENT
  Age: 35 Year
  Sex: Female

DRUGS (1)
  1. HUMAN IMMUNOGLOBULIN G [Suspect]
     Active Substance: HUMAN IMMUNOGLOBULIN G
     Indication: Hereditary motor and sensory neuropathy
     Route: 042

REACTIONS (3)
  - Cerebral infarction [Unknown]
  - Speech disorder [Unknown]
  - Off label use [Unknown]
